FAERS Safety Report 7359253-2 (Version None)
Quarter: 2011Q1

REPORT INFORMATION
  Report Type: 
  Country: None (occurrence: None)
  Receive Date: 20110317
  Receipt Date: 20090706
  Transmission Date: 20110831
  Serious: No
  Sender: FDA-Public Use
  Company Number: US-PFIZER INC-2009237346

PATIENT
  Sex: Male
  Weight: 88.435 kg

DRUGS (3)
  1. LIPITOR [Concomitant]
     Dosage: UNK
  2. NORVASC [Suspect]
     Indication: HYPERTENSION
     Dosage: 5 MG, 1X/DAY
     Dates: start: 20070101
  3. ATENOLOL [Concomitant]
     Dosage: 25MG

REACTIONS (1)
  - JOINT SWELLING [None]
